FAERS Safety Report 12654162 (Version 1)
Quarter: 2016Q3

REPORT INFORMATION
  Report Type: Spontaneous
  Country: US (occurrence: None)
  Receive Date: 20160815
  Receipt Date: 20160815
  Transmission Date: 20161109
  Serious: Yes (Disabling)
  Sender: FDA-Public Use
  Company Number: None

PATIENT
  Age: 52 Year
  Sex: Female
  Weight: 59.88 kg

DRUGS (12)
  1. LEVAQUIN [Suspect]
     Active Substance: LEVOFLOXACIN
     Indication: COUGH
     Dates: start: 20160120
  2. LEVAQUIN [Suspect]
     Active Substance: LEVOFLOXACIN
     Indication: PULMONARY CONGESTION
     Dates: start: 20160120
  3. PSYLLIUM HUSK [Concomitant]
     Active Substance: PSYLLIUM HUSK
  4. MAGNESIUM [Concomitant]
     Active Substance: MAGNESIUM
  5. GINGER. [Concomitant]
     Active Substance: GINGER
  6. FISH OIL [Concomitant]
     Active Substance: FISH OIL
  7. VITAMIN C [Concomitant]
     Active Substance: ASCORBIC ACID
  8. DIGESTIVE ENZYME [Concomitant]
     Active Substance: UNSPECIFIED INGREDIENT
  9. VITAMIN B12 [Concomitant]
     Active Substance: CYANOCOBALAMIN
  10. MULTI VITAMIN [Concomitant]
     Active Substance: VITAMINS
  11. ALA [Concomitant]
  12. TURMERIC [Concomitant]
     Active Substance: TURMERIC

REACTIONS (6)
  - Tendon pain [None]
  - Tendonitis [None]
  - Plantar fasciitis [None]
  - Fatigue [None]
  - Pain in extremity [None]
  - Gait disturbance [None]

NARRATIVE: CASE EVENT DATE: 20160201
